FAERS Safety Report 23748954 (Version 1)
Quarter: 2024Q2

REPORT INFORMATION
  Report Type: Report from Study
  Country: US (occurrence: US)
  Receive Date: 20240416
  Receipt Date: 20240416
  Transmission Date: 20240716
  Serious: Yes (Hospitalization, Other)
  Sender: FDA-Public Use
  Company Number: US-Pharmaand-2024000235

PATIENT
  Sex: Male
  Weight: 99.8 kg

DRUGS (18)
  1. RUBRACA [Suspect]
     Active Substance: RUCAPARIB CAMSYLATE
     Indication: Prostate cancer
     Dosage: 2 TABLETS DAILY
     Route: 048
     Dates: start: 2021
  2. RUBRACA [Suspect]
     Active Substance: RUCAPARIB CAMSYLATE
     Dosage: 300 MG, 1X/DAY
     Route: 048
  3. XGEVA [Suspect]
     Active Substance: DENOSUMAB
     Dosage: 120 MG/1.7 VIAL
  4. XANAX [Concomitant]
     Active Substance: ALPRAZOLAM
  5. ONDANSETRON HYDROCHLORIDE [Concomitant]
     Active Substance: ONDANSETRON HYDROCHLORIDE
  6. FLUOXETINE HYDROCHLORIDE [Concomitant]
     Active Substance: FLUOXETINE HYDROCHLORIDE
  7. ATORVASTATIN CALCIUM [Concomitant]
     Active Substance: ATORVASTATIN CALCIUM
  8. LEVOTHYROXINE SODIUM [Concomitant]
     Active Substance: LEVOTHYROXINE SODIUM
  9. VITAMIN B12 [Concomitant]
     Active Substance: CYANOCOBALAMIN
  10. VITAMIN C [Concomitant]
     Active Substance: ASCORBIC ACID
  11. LUPRON DEPOT-PED [Concomitant]
     Active Substance: LEUPROLIDE ACETATE
  12. VITAMINS NOS [Concomitant]
     Active Substance: VITAMINS
  13. VITAMIN D3 [Concomitant]
     Active Substance: CHOLECALCIFEROL
  14. WELLBUTRIN SR [Concomitant]
     Active Substance: BUPROPION HYDROCHLORIDE
     Dosage: 150 MG TABLET SR 12 H
  15. VITAMIN B12 [Concomitant]
     Active Substance: CYANOCOBALAMIN
  16. VITAMIN E [Concomitant]
     Active Substance: .ALPHA.-TOCOPHEROL
  17. VITAMIN B COMPLEX [Concomitant]
     Active Substance: CYANOCOBALAMIN\DEXPANTHENOL\NIACINAMIDE\PYRIDOXINE HYDROCHLORIDE\RIBOFLAVIN 5^-PHOSPHATE SODIUM\THIA
  18. TYLENOL PM EXTRA STRENGTH [Concomitant]
     Active Substance: ACETAMINOPHEN\DIPHENHYDRAMINE HYDROCHLORIDE

REACTIONS (7)
  - Pulmonary fibrosis [Not Recovered/Not Resolved]
  - Tooth disorder [Not Recovered/Not Resolved]
  - Constipation [Not Recovered/Not Resolved]
  - Sunburn [Not Recovered/Not Resolved]
  - Fatigue [Not Recovered/Not Resolved]
  - Apathy [Unknown]
  - Spermatozoa abnormal [Unknown]
